FAERS Safety Report 20649571 (Version 1)
Quarter: 2022Q1

REPORT INFORMATION
  Report Type: Report from Study
  Country: IN (occurrence: IN)
  Receive Date: 20220329
  Receipt Date: 20220329
  Transmission Date: 20220424
  Serious: Yes (Hospitalization, Other)
  Sender: FDA-Public Use
  Company Number: IN-NOVARTISPH-PHHY2019IN119893

PATIENT
  Age: 33 Year
  Sex: Male

DRUGS (21)
  1. SIMULECT [Suspect]
     Active Substance: BASILIXIMAB
     Indication: Renal transplant
     Dosage: 1 DOSAGE FORM
     Route: 042
     Dates: start: 20190415, end: 20190418
  2. SIMULECT [Suspect]
     Active Substance: BASILIXIMAB
     Dosage: 2 DOSAGE FORM (AF)
     Route: 065
     Dates: start: 20190507
  3. TACROLIMUS [Suspect]
     Active Substance: TACROLIMUS
     Indication: Product used for unknown indication
     Dosage: UNK
     Route: 065
  4. PREDNISOLONE [Concomitant]
     Active Substance: PREDNISOLONE
     Indication: Product used for unknown indication
     Dosage: 30 MG, QD (1 (8 AM)-0-0)
     Route: 065
     Dates: end: 20190511
  5. PREDNISOLONE [Concomitant]
     Active Substance: PREDNISOLONE
     Dosage: 25 MG, QD (1 (8 AM)-0-0)
     Route: 065
     Dates: start: 20190512, end: 20190517
  6. PREDNISOLONE [Concomitant]
     Active Substance: PREDNISOLONE
     Dosage: 20 UNK  (1 (8 AM)-0-0)
     Route: 065
  7. MYCOPHENOLATE SODIUM [Concomitant]
     Active Substance: MYCOPHENOLATE SODIUM
     Indication: Product used for unknown indication
     Dosage: 360 MG, TID  (360MG (10 AM)-360MG (4 PM)-360MG (10 PM) (2 HOURS AFTER FOOD)
     Route: 065
  8. TACROLIMUS [Concomitant]
     Active Substance: TACROLIMUS
     Indication: Product used for unknown indication
     Dosage: 2 MG, BID (2MG (7 AM)-0-2MG (7 PM) (B/F)
     Route: 065
  9. SEPTRAN [Concomitant]
     Indication: Product used for unknown indication
     Dosage: UNK, QD (0-1 (12PM)-0)
     Route: 048
  10. VALGANCICLOVIR [Concomitant]
     Active Substance: VALGANCICLOVIR
     Indication: Product used for unknown indication
     Dosage: 450 MG, QD (0-1-0) (ALTERNATE DAYS)
     Route: 065
  11. PAN [Concomitant]
     Indication: Product used for unknown indication
     Dosage: 40 MG, QD (1-0-0) (B/F)
     Route: 065
  12. CALCIGARD [Concomitant]
     Indication: Product used for unknown indication
     Dosage: 20 MG, QD (0-0-1 (7PM)) (A/F)
     Route: 065
  13. CARDIVAS [Concomitant]
     Indication: Product used for unknown indication
     Dosage: 3.125 MG, BID (1-0-1) (A/F)
     Route: 065
  14. ARKAMIN [Concomitant]
     Indication: Product used for unknown indication
     Dosage: 0.1 MG, BID (1 (9AM)-0-1 (9PM)) (WITHHOLD)
     Route: 065
  15. ISMO [Concomitant]
     Active Substance: ISOSORBIDE MONONITRATE
     Indication: Product used for unknown indication
     Dosage: UNK, QD (0-0-1) (WITHHOLD)
     Route: 065
  16. LEVOTHYROXINE [Concomitant]
     Active Substance: LEVOTHYROXINE
     Indication: Product used for unknown indication
     Dosage: 50 UG, QD (1-0-0) (EMPTY STOMACH)
     Route: 065
  17. FOLVITE [Concomitant]
     Active Substance: FOLIC ACID
     Indication: Product used for unknown indication
     Dosage: 5 MG, QD (1-0-0)
     Route: 065
  18. CALCIUM CARBONATE\CHOLECALCIFEROL [Concomitant]
     Active Substance: CALCIUM CARBONATE\CHOLECALCIFEROL
     Indication: Product used for unknown indication
     Dosage: 500 MG, TID (1-1-1)
     Route: 065
  19. BECOSULES [Concomitant]
     Indication: Product used for unknown indication
     Dosage: UNK, QD (0-0-1)
     Route: 065
  20. VITAMIN B12 [Concomitant]
     Active Substance: CYANOCOBALAMIN
     Indication: Product used for unknown indication
     Dosage: 100 UG, Q3MO (ONCE IN 3 MONTHS)
     Route: 030
  21. INSULIN HUMAN [Concomitant]
     Active Substance: INSULIN HUMAN
     Indication: Product used for unknown indication
     Dosage: UNK, BID (0-6U-4U) (HALF AN HOUR BEFORE FOOD)
     Route: 058

REACTIONS (14)
  - Kidney transplant rejection [Recovering/Resolving]
  - Tubulointerstitial nephritis [Unknown]
  - Oedematous kidney [Unknown]
  - Arteritis [Unknown]
  - Tissue infiltration [Unknown]
  - Apoptosis [Unknown]
  - Ventricular hypokinesia [Unknown]
  - Mitral valve incompetence [Unknown]
  - Aortic valve incompetence [Unknown]
  - Tricuspid valve incompetence [Unknown]
  - Ascites [Unknown]
  - Acute kidney injury [Unknown]
  - Left ventricular hypertrophy [Unknown]
  - Toxicity to various agents [Unknown]

NARRATIVE: CASE EVENT DATE: 20190416
